FAERS Safety Report 15627915 (Version 1)
Quarter: 2018Q4

REPORT INFORMATION
  Report Type: Spontaneous
  Country: US (occurrence: US)
  Receive Date: 20181116
  Receipt Date: 20181116
  Transmission Date: 20190205
  Serious: No
  Sender: FDA-Public Use
  Company Number: US-MYLANLABS-2018M1084942

PATIENT
  Sex: Female
  Weight: 60 kg

DRUGS (1)
  1. FLUOXETINE [Suspect]
     Active Substance: FLUOXETINE HYDROCHLORIDE
     Indication: PRODUCT USED FOR UNKNOWN INDICATION
     Dosage: 20 MG, UNK (FOR APPROXIMATELY 2 AND A HALF WEEKS)
     Route: 048

REACTIONS (3)
  - Gastrointestinal tract irritation [Recovered/Resolved]
  - Adverse reaction [Unknown]
  - Gastrooesophageal reflux disease [Recovered/Resolved]
